FAERS Safety Report 7776485-X (Version None)
Quarter: 2011Q3

REPORT INFORMATION
  Report Type: 
  Country: None (occurrence: None)
  Receive Date: 20110926
  Receipt Date: 20110916
  Transmission Date: 20111222
  Serious: Yes (Hospitalization)
  Sender: FDA-Public Use
  Company Number: US-US-EMD SERONO, INC.-7083886

PATIENT
  Sex: Female

DRUGS (1)
  1. REBIF [Suspect]
     Indication: MULTIPLE SCLEROSIS
     Route: 058
     Dates: start: 20080115

REACTIONS (7)
  - INFECTIOUS PERITONITIS [None]
  - HYSTERECTOMY [None]
  - OVARIAN ENLARGEMENT [None]
  - SEPSIS [None]
  - ADNEXA UTERI PAIN [None]
  - LARGE INTESTINE PERFORATION [None]
  - INJECTION SITE HAEMATOMA [None]
